FAERS Safety Report 10166617 (Version 1)
Quarter: 2014Q2

REPORT INFORMATION
  Report Type: Spontaneous
  Country: AT (occurrence: AT)
  Receive Date: 20140512
  Receipt Date: 20140512
  Transmission Date: 20141212
  Serious: Yes (Hospitalization, Other)
  Sender: FDA-Public Use
  Company Number: AT-JNJFOC-20140420941

PATIENT
  Age: 84 Year
  Sex: Female

DRUGS (9)
  1. RISPERDAL [Suspect]
     Indication: DELUSIONAL DISORDER, UNSPECIFIED TYPE
     Route: 048
     Dates: start: 20070131, end: 20070206
  2. FOSAMAX [Suspect]
     Indication: OSTEOPOROSIS
     Dosage: FOR 1 WEEK
     Route: 048
  3. THYREX [Suspect]
     Indication: PRODUCT USED FOR UNKNOWN INDICATION
     Dosage: SINCE LONGER TIME
     Route: 048
  4. PANTOLOC [Suspect]
     Indication: PRODUCT USED FOR UNKNOWN INDICATION
     Route: 048
  5. KOMBI-KALZ [Suspect]
     Indication: OSTEOPOROSIS
     Dosage: SINCE LONGER TIME
     Route: 065
  6. LAEVOLAC [Suspect]
     Indication: PRODUCT USED FOR UNKNOWN INDICATION
     Dosage: 1MB SINCE LONGER TIME
     Route: 048
  7. DOMINAL [Suspect]
     Indication: PRODUCT USED FOR UNKNOWN INDICATION
     Route: 048
     Dates: start: 20070126
  8. ARICEPT [Suspect]
     Indication: PRODUCT USED FOR UNKNOWN INDICATION
     Route: 065
     Dates: start: 20070126, end: 20070206
  9. SEROQUEL [Suspect]
     Indication: PRODUCT USED FOR UNKNOWN INDICATION
     Route: 065
     Dates: start: 20070122, end: 20070130

REACTIONS (1)
  - Hyponatraemia [Recovered/Resolved]
